FAERS Safety Report 5824512-9 (Version None)
Quarter: 2008Q3

REPORT INFORMATION
  Report Type: 
  Country: None (occurrence: None)
  Receive Date: 20080728
  Receipt Date: 20080723
  Transmission Date: 20090109
  Serious: Yes (Life-Threatening)
  Sender: FDA-Public Use
  Company Number: GB-TEVA-174036ISR

PATIENT
  Age: 54 Year
  Sex: Male

DRUGS (11)
  1. ETOPOSIDE [Suspect]
     Indication: ACUTE LYMPHOCYTIC LEUKAEMIA
  2. METHOTREXATE [Suspect]
     Indication: ACUTE LYMPHOCYTIC LEUKAEMIA
  3. PREDNISOLONE [Suspect]
     Indication: ACUTE LYMPHOCYTIC LEUKAEMIA
  4. ASPARAGINASE [Suspect]
  5. CYCLOPHOSPHAMIDE [Suspect]
  6. CYTARABINE [Suspect]
  7. DEXAMETHASONE [Suspect]
  8. DAUNORUBICIN HCL [Suspect]
  9. MERCAPTOPURINE [Suspect]
  10. THIOGUANINE [Suspect]
  11. VINCRISTINE [Suspect]

REACTIONS (1)
  - CHRONIC MYELOID LEUKAEMIA [None]
